FAERS Safety Report 15819900 (Version 1)
Quarter: 2019Q1

REPORT INFORMATION
  Report Type: Other
  Country: US (occurrence: US)
  Receive Date: 20190114
  Receipt Date: 20190114
  Transmission Date: 20190417
  Serious: Yes (Other)
  Sender: FDA-Public Use
  Company Number: US-IMPAX LABORATORIES, LLC-2018-IPXL-02888

PATIENT
  Age: 36 Year
  Sex: Female
  Weight: 53 kg

DRUGS (3)
  1. NALTREXONE [Concomitant]
     Active Substance: NALTREXONE
     Indication: BINGE EATING
     Dosage: 50 MG, ONCE A DAY
     Route: 048
  2. BUPROPION XL [Suspect]
     Active Substance: BUPROPION
     Indication: DEPRESSION
     Dosage: 150 MG, UNK
     Route: 065
     Dates: start: 20180726, end: 20180809
  3. ZONEGRAN [Concomitant]
     Active Substance: ZONISAMIDE
     Indication: AFFECTIVE DISORDER
     Dosage: 50 MG, ONCE A DAY
     Route: 048

REACTIONS (8)
  - Drug ineffective [Unknown]
  - Hyperventilation [Recovered/Resolved]
  - Crying [Recovered/Resolved]
  - Heart rate increased [Recovered/Resolved]
  - Product substitution issue [Unknown]
  - Herpes zoster [Recovered/Resolved]
  - Panic attack [Recovered/Resolved]
  - Blood pressure increased [Recovered/Resolved]

NARRATIVE: CASE EVENT DATE: 2018
